FAERS Safety Report 6682291-X (Version None)
Quarter: 2010Q2

REPORT INFORMATION
  Report Type: 
  Country: None (occurrence: None)
  Receive Date: 20100414
  Receipt Date: 20100414
  Transmission Date: 20101027
  Serious: Yes (Life-Threatening, Hospitalization)
  Sender: FDA-Public Use
  Company Number: None

PATIENT
  Sex: Male
  Weight: 122.4712 kg

DRUGS (3)
  1. TOPICAL BENZOCAINE  OBABASE BENZOCAINE [Suspect]
     Dosage: DOSED TWICE 1/2 HOUR BEFORE CRISIS
  2. STOMACH BYPASS [Concomitant]
  3. POLYAPTIC KIDNEY DISEASE WITH NORMAL RENAL FUNCTION [Concomitant]

REACTIONS (3)
  - ABASIA [None]
  - DEPRESSED LEVEL OF CONSCIOUSNESS [None]
  - METHAEMOGLOBINAEMIA [None]
